FAERS Safety Report 5729817-8 (Version None)
Quarter: 2008Q2

REPORT INFORMATION
  Report Type: 
  Country: None (occurrence: None)
  Receive Date: 20080501
  Receipt Date: 20080417
  Transmission Date: 20081010
  Serious: Yes (Death)
  Sender: FDA-Public Use
  Company Number: 2008S1005661

PATIENT
  Age: 18 Year
  Sex: Male

DRUGS (5)
  1. TRAMADOL HCL [Suspect]
  2. FLUNITRAZEPAM (FLUNITRAZEPAM) [Concomitant]
  3. SERTRALINE [Concomitant]
  4. AMPHETAMINE SALTS (AMFETAMINE SULFATE) [Concomitant]
  5. GHB [Concomitant]

REACTIONS (1)
  - OVERDOSE [None]
